FAERS Safety Report 24218336 (Version 3)
Quarter: 2024Q4

REPORT INFORMATION
  Report Type: Report from Study
  Country: US (occurrence: US)
  Receive Date: 20240816
  Receipt Date: 20241206
  Transmission Date: 20250115
  Serious: Yes (Hospitalization, Other)
  Sender: SUNOVION
  Company Number: US-SMPA-2024SPA000973

PATIENT

DRUGS (1)
  1. ORGOVYX [Suspect]
     Active Substance: RELUGOLIX
     Indication: Prostate cancer
     Dosage: 120 MG, QD
     Route: 048
     Dates: start: 20240418

REACTIONS (5)
  - Penile operation [Unknown]
  - Blood pressure increased [Unknown]
  - Diabetes mellitus [Unknown]
  - Fall [Unknown]
  - Incorrect dose administered [Unknown]
